FAERS Safety Report 6842906-X (Version None)
Quarter: 2010Q3

REPORT INFORMATION
  Report Type: 
  Country: None (occurrence: None)
  Receive Date: 20100714
  Receipt Date: 20070908
  Transmission Date: 20110219
  Serious: Yes (Other)
  Sender: FDA-Public Use
  Company Number: US-PFIZER INC-2007066894

PATIENT
  Sex: Female
  Weight: 45.454 kg

DRUGS (20)
  1. CHANTIX [Suspect]
     Indication: SMOKING CESSATION THERAPY
     Dosage: EVERYDAY
     Dates: start: 20070723, end: 20070901
  2. STEROID ANTIBACTERIALS [Suspect]
     Indication: INFECTION
  3. AVELOX [Suspect]
     Indication: INFECTION
     Dates: end: 20070808
  4. VERAPAMIL [Concomitant]
  5. VITAMIN B COMPLEX CAP [Concomitant]
  6. FOLIC ACID [Concomitant]
     Route: 048
  7. PREVACID [Concomitant]
     Route: 048
  8. PRAVASTATIN [Concomitant]
  9. FOSAMAX [Concomitant]
     Route: 048
  10. TIOTROPIUM BROMIDE [Concomitant]
     Route: 055
  11. ADVAIR DISKUS 100/50 [Concomitant]
  12. NIACINAMIDE [Concomitant]
  13. VERAPAMIL HYDROCHLORIDE [Concomitant]
     Route: 048
  14. ACETYLSALICYLIC ACID [Concomitant]
     Route: 048
  15. PRAVACHOL [Concomitant]
     Route: 048
  16. VALIUM [Concomitant]
     Route: 048
  17. VITAMIN D [Concomitant]
  18. TUMS [Concomitant]
     Route: 048
  19. ADVAIR DISKUS 100/50 [Concomitant]
     Route: 055
  20. MUCINEX [Concomitant]

REACTIONS (11)
  - ABDOMINAL HERNIA [None]
  - ANXIETY [None]
  - APATHY [None]
  - ASTHENIA [None]
  - CONSTIPATION [None]
  - DISTURBANCE IN ATTENTION [None]
  - DYSPNOEA [None]
  - FATIGUE [None]
  - NAUSEA [None]
  - PSYCHOMOTOR HYPERACTIVITY [None]
  - TOBACCO WITHDRAWAL SYMPTOMS [None]
